FAERS Safety Report 5246608-5 (Version None)
Quarter: 2007Q1

REPORT INFORMATION
  Report Type: 
  Country: None (occurrence: None)
  Receive Date: 20070226
  Receipt Date: 20070214
  Transmission Date: 20070707
  Serious: Yes (Death, Hospitalization)
  Sender: FDA-Public Use
  Company Number: IT-ROCHE-480002

PATIENT
  Age: 62 Year
  Sex: Male

DRUGS (7)
  1. PEG-INTERFERON A-2A (RO 25-8310) [Suspect]
     Route: 058
     Dates: start: 20060814, end: 20061224
  2. RIBAVIRIN [Suspect]
     Route: 048
     Dates: start: 20060814, end: 20061224
  3. BLINDED THYMOSIN ALFA 1 [Suspect]
     Route: 058
     Dates: start: 20060814, end: 20061222
  4. PROPRANOLOL [Concomitant]
     Indication: PROPHYLAXIS
     Route: 048
     Dates: start: 20031122, end: 20070125
  5. PANTOPRAZOLE SODIUM [Concomitant]
     Indication: GASTRITIS
     Route: 048
     Dates: start: 20061130, end: 20070125
  6. POTASSIUM CANRENOATE [Concomitant]
     Indication: PROPHYLAXIS
     Route: 048
     Dates: start: 20061114, end: 20070125
  7. FUROSEMIDE [Concomitant]
     Indication: PROPHYLAXIS
     Route: 048
     Dates: start: 20061130, end: 20070125

REACTIONS (2)
  - DEATH [None]
  - PULMONARY FIBROSIS [None]
